FAERS Safety Report 19150964 (Version 1)
Quarter: 2021Q2

REPORT INFORMATION
  Report Type: Spontaneous
  Country: JP (occurrence: JP)
  Receive Date: 20210419
  Receipt Date: 20210419
  Transmission Date: 20210717
  Serious: Yes (Other)
  Sender: FDA-Public Use
  Company Number: JP-009507513-2104JPN000985J

PATIENT
  Age: 4 Decade
  Sex: Male

DRUGS (2)
  1. BELSOMRA [Suspect]
     Active Substance: SUVOREXANT
     Indication: INSOMNIA
     Dosage: 20 MILLIGRAM, QD
     Route: 048
  2. BELSOMRA [Suspect]
     Active Substance: SUVOREXANT
     Dosage: AFTER TAKING,ABOUT 10 TABLETS WERE TAKEN IN THE NIGHT
     Route: 048

REACTIONS (3)
  - Delirium [Recovered/Resolved]
  - Somnambulism [Recovered/Resolved]
  - Accidental overdose [Unknown]
